FAERS Safety Report 25136546 (Version 1)
Quarter: 2025Q1

REPORT INFORMATION
  Report Type: Spontaneous
  Country: GB (occurrence: GB)
  Receive Date: 20250328
  Receipt Date: 20250328
  Transmission Date: 20250408
  Serious: Yes (Death, Life-Threatening, Other)
  Sender: PFIZER
  Company Number: None

PATIENT
  Age: 81 Year
  Sex: Female

DRUGS (1)
  1. RITUXIMAB [Suspect]
     Active Substance: RITUXIMAB
     Indication: Lymphoma
     Dates: start: 20250205

REACTIONS (3)
  - Anaphylactoid reaction [Fatal]
  - Pulseless electrical activity [Unknown]
  - Off label use [Unknown]

NARRATIVE: CASE EVENT DATE: 20250205
